FAERS Safety Report 7945869-9 (Version None)
Quarter: 2011Q4

REPORT INFORMATION
  Report Type: 
  Country: None (occurrence: None)
  Receive Date: 20111129
  Receipt Date: 20111121
  Transmission Date: 20120403
  Serious: Yes (Disabling, Other)
  Sender: FDA-Public Use
  Company Number: PHHY2009AU40544

PATIENT
  Sex: Female

DRUGS (3)
  1. GLEEVEC [Suspect]
     Indication: CHRONIC MYELOID LEUKAEMIA
     Dosage: 400 MG,DAILY
     Route: 048
     Dates: start: 20090818
  2. PRIMRIN [Concomitant]
     Indication: HORMONE REPLACEMENT THERAPY
  3. ADACAN [Concomitant]
     Indication: HYPERTENSION

REACTIONS (11)
  - ANAEMIA [None]
  - HEPATIC NEOPLASM [None]
  - GASTROINTESTINAL HAEMORRHAGE [None]
  - VOMITING [None]
  - FATIGUE [None]
  - PRURITUS [None]
  - HEPATIC ENZYME ABNORMAL [None]
  - BLOOD BLISTER [None]
  - NAUSEA [None]
  - RASH [None]
  - MYALGIA [None]
